FAERS Safety Report 4302433-0 (Version None)
Quarter: 2004Q1

REPORT INFORMATION
  Report Type: 
  Country: None (occurrence: None)
  Receive Date: 20040223
  Receipt Date: 20040218
  Transmission Date: 20041129
  Serious: Yes (Death)
  Sender: FDA-Public Use
  Company Number: 04-02-0254

PATIENT
  Age: 86 Year
  Sex: Female

DRUGS (1)
  1. CLOZAPINE - IVAX PHARMACEUTICALS, INS. TABLETS [Suspect]
     Indication: DEMENTIA
     Dosage: 75-275MG QD ORAL
     Route: 048
     Dates: start: 19981001, end: 20040101

REACTIONS (1)
  - PNEUMONIA [None]
